FAERS Safety Report 11732201 (Version 1)
Quarter: 2015Q4

REPORT INFORMATION
  Report Type: Spontaneous
  Country: US (occurrence: US)
  Receive Date: 20151113
  Receipt Date: 20151113
  Transmission Date: 20160304
  Serious: No
  Sender: FDA-Public Use
  Company Number: US-ASTRAZENECA-2015SF07058

PATIENT
  Age: 28149 Day
  Sex: Female
  Weight: 103.4 kg

DRUGS (1)
  1. PULMICORT FLEXHALER [Suspect]
     Active Substance: BUDESONIDE
     Indication: ASTHMA
     Dosage: 180 MCG 2 PUFFS, TWO TIMES A DAY
     Route: 055
     Dates: start: 20151029

REACTIONS (6)
  - Feeling abnormal [Unknown]
  - Dizziness [Unknown]
  - Rhinorrhoea [Unknown]
  - Sneezing [Unknown]
  - Lethargy [Unknown]
  - Head discomfort [Unknown]

NARRATIVE: CASE EVENT DATE: 20151102
